FAERS Safety Report 18745297 (Version 2)
Quarter: 2021Q1

REPORT INFORMATION
  Report Type: Report from Study
  Country: US (occurrence: US)
  Receive Date: 20210115
  Receipt Date: 20210224
  Transmission Date: 20210419
  Serious: Yes (Death, Hospitalization)
  Sender: FDA-Public Use
  Company Number: US-BAUSCH-BL-2021-001182

PATIENT
  Age: 77 Year
  Sex: Male
  Weight: 97.61 kg

DRUGS (1)
  1. XIFAXAN [Suspect]
     Active Substance: RIFAXIMIN
     Indication: HEPATIC ENCEPHALOPATHY
     Dosage: AT LEAST 4 YEARS AGO
     Route: 048

REACTIONS (3)
  - Renal failure [Fatal]
  - Myocardial infarction [Unknown]
  - Hospice care [Unknown]

NARRATIVE: CASE EVENT DATE: 2017
